FAERS Safety Report 16351609 (Version 2)
Quarter: 2019Q2

REPORT INFORMATION
  Report Type: Report from Study
  Country: None (occurrence: US)
  Receive Date: 20190524
  Receipt Date: 20190601
  Transmission Date: 20190711
  Serious: Yes (Life-Threatening, Hospitalization, Other)
  Sender: FDA-Public Use
  Company Number: US-ABBVIE-19K-163-2790116-00

PATIENT
  Age: 69 Year
  Sex: Female
  Weight: 63.56 kg

DRUGS (1)
  1. VENCLEXTA [Suspect]
     Active Substance: VENETOCLAX
     Indication: CHRONIC LYMPHOCYTIC LEUKAEMIA
     Route: 048
     Dates: end: 201902

REACTIONS (1)
  - Richter^s syndrome [Not Recovered/Not Resolved]

NARRATIVE: CASE EVENT DATE: 2019
